FAERS Safety Report 6031497-1 (Version None)
Quarter: 2008Q4

REPORT INFORMATION
  Report Type: 
  Country: None (occurrence: None)
  Receive Date: 20081229
  Receipt Date: 20080630
  Transmission Date: 20090506
  Serious: Yes (Hospitalization, Other)
  Sender: FDA-Public Use
  Company Number: 171008USA

PATIENT
  Age: 82 Year
  Sex: Male

DRUGS (4)
  1. AMIODARONE HYDROCHLORIDE [Suspect]
     Indication: ATRIAL FIBRILLATION
     Dosage: (200 MG), ORAL
     Route: 048
     Dates: start: 20070301, end: 20080319
  2. AMLODIPINE [Concomitant]
  3. METOPROLOL SUCCINATE [Concomitant]
  4. LISINOPRIL [Concomitant]

REACTIONS (2)
  - DRUG TOXICITY [None]
  - PNEUMONITIS [None]
